FAERS Safety Report 12430575 (Version 1)
Quarter: 2016Q2

REPORT INFORMATION
  Report Type: Spontaneous
  Country: RU (occurrence: RU)
  Receive Date: 20160602
  Receipt Date: 20160602
  Transmission Date: 20160815
  Serious: Yes (Other)
  Sender: FDA-Public Use
  Company Number: RU-ALLERGAN-1658463US

PATIENT
  Age: 55 Year
  Sex: Male

DRUGS (1)
  1. UROREC [Suspect]
     Active Substance: SILODOSIN
     Indication: ADENOMA BENIGN
     Dosage: 8 MG, QD
     Route: 048
     Dates: start: 201601, end: 201602

REACTIONS (3)
  - Dizziness [Recovered/Resolved]
  - Malaise [Recovered/Resolved]
  - Tachycardia [Recovered/Resolved]
